FAERS Safety Report 10142572 (Version 1)
Quarter: 2014Q2

REPORT INFORMATION
  Report Type: Report from Study
  Country: US (occurrence: US)
  Receive Date: 20140430
  Receipt Date: 20140430
  Transmission Date: 20141212
  Serious: Yes (Other)
  Sender: FDA-Public Use
  Company Number: US-ROCHE-1390634

PATIENT
  Age: 7 Year
  Sex: Male
  Weight: 16.9 kg

DRUGS (1)
  1. CLONAZEPAM [Suspect]
     Indication: PRODUCT USED FOR UNKNOWN INDICATION
     Route: 048

REACTIONS (4)
  - Developmental hip dysplasia [Unknown]
  - Arthralgia [Unknown]
  - Epiphyses delayed fusion [Unknown]
  - Growth retardation [Unknown]
